FAERS Safety Report 15437964 (Version 1)
Quarter: 2018Q3

REPORT INFORMATION
  Report Type: Spontaneous
  Country: DE (occurrence: DE)
  Receive Date: 20180928
  Receipt Date: 20180928
  Transmission Date: 20181010
  Serious: Yes (Hospitalization, Other)
  Sender: FDA-Public Use
  Company Number: DE-AUROBINDO-AUR-APL-2018-004547

PATIENT
  Age: 41 Year
  Sex: Female

DRUGS (8)
  1. GEMCITABINE [Suspect]
     Active Substance: GEMCITABINE\GEMCITABINE HYDROCHLORIDE
     Indication: LUNG ADENOCARCINOMA
     Dosage: EVERY 3 WKS, TOTAL 7 CYCLES (1)
     Route: 065
  2. BEVACIZUMAB. [Suspect]
     Active Substance: BEVACIZUMAB
     Indication: LUNG ADENOCARCINOMA
     Dosage: EVERY 3 WKS, TOTAL 7 CYCLES (1)
     Route: 065
  3. CISPLATIN. [Suspect]
     Active Substance: CISPLATIN
     Dosage: TOTAL 7 CYCLES (1 IN 3 WK) ()
     Route: 065
  4. CLOBAZAM [Concomitant]
     Active Substance: CLOBAZAM
     Indication: PRODUCT USED FOR UNKNOWN INDICATION
     Dosage: UNK
     Route: 065
  5. PHENYTOIN. [Concomitant]
     Active Substance: PHENYTOIN
     Indication: SEIZURE
     Dosage: UNK
     Route: 065
  6. LEVETIRACETAM. [Suspect]
     Active Substance: LEVETIRACETAM
     Indication: SEIZURE
     Dosage: 4 GRAM
     Route: 042
  7. CISPLATIN. [Suspect]
     Active Substance: CISPLATIN
     Indication: LUNG ADENOCARCINOMA
     Dosage: EVERY 3 WKS, TOTAL 7 CYCLES (1)
     Route: 065
  8. CISPLATIN. [Suspect]
     Active Substance: CISPLATIN
     Dosage: EVERY 3 WKS, TOTAL 7 CYCLES ()
     Route: 065

REACTIONS (14)
  - Biopsy brain [Recovering/Resolving]
  - Ataxia [Recovering/Resolving]
  - Confusional state [Recovering/Resolving]
  - Drug ineffective [Recovered/Resolved]
  - Hallucination, visual [Recovering/Resolving]
  - Nausea [Recovering/Resolving]
  - Off label use [Unknown]
  - Vomiting [Recovering/Resolving]
  - Generalised tonic-clonic seizure [Recovering/Resolving]
  - Posterior reversible encephalopathy syndrome [Recovered/Resolved]
  - Traumatic lung injury [Recovering/Resolving]
  - Partial seizures [Recovered/Resolved]
  - Hypertension [Recovering/Resolving]
  - Headache [Recovering/Resolving]
